FAERS Safety Report 21820996 (Version 2)
Quarter: 2023Q1

REPORT INFORMATION
  Report Type: Spontaneous
  Country: US (occurrence: US)
  Receive Date: 20230105
  Receipt Date: 20230105
  Transmission Date: 20230418
  Serious: No
  Sender: FDA-Public Use
  Company Number: US-LUPIN PHARMACEUTICALS INC.-2022-14741

PATIENT
  Age: 7 Year
  Sex: Female
  Weight: 21.769 kg

DRUGS (1)
  1. OSELTAMIVIR PHOSPHATE [Suspect]
     Active Substance: OSELTAMIVIR PHOSPHATE
     Indication: Influenza
     Dosage: 10 MILLILITER, BID
     Route: 048
     Dates: start: 20221216, end: 20221216

REACTIONS (3)
  - Nausea [Recovered/Resolved]
  - Product dose omission issue [Unknown]
  - Product taste abnormal [Unknown]

NARRATIVE: CASE EVENT DATE: 20221216
